FAERS Safety Report 6738546-3 (Version None)
Quarter: 2010Q2

REPORT INFORMATION
  Report Type: 
  Country: None (occurrence: None)
  Receive Date: 20100524
  Receipt Date: 20100514
  Transmission Date: 20101027
  Serious: Yes (Hospitalization, Other)
  Sender: FDA-Public Use
  Company Number: GB-TEVA-235079ISR

PATIENT
  Age: 32 Year
  Sex: Female

DRUGS (6)
  1. METOPROLOL [Suspect]
  2. SALBUTAMOL [Suspect]
     Indication: WHEEZING
  3. ACETYLSALICYLIC ACID [Suspect]
  4. DIGOXIN [Suspect]
     Indication: TACHYCARDIA
  5. ENOXAPARIN SODIUM [Suspect]
  6. FUROSEMIDE [Suspect]
     Route: 011

REACTIONS (10)
  - DRUG EXPOSURE DURING PREGNANCY [None]
  - GENERAL PHYSICAL HEALTH DETERIORATION [None]
  - HELLP SYNDROME [None]
  - INTRA-UTERINE DEATH [None]
  - LEFT ATRIAL DILATATION [None]
  - MITRAL VALVE INCOMPETENCE [None]
  - MITRAL VALVE STENOSIS [None]
  - PRE-ECLAMPSIA [None]
  - PULMONARY HYPERTENSION [None]
  - PULMONARY OEDEMA [None]
